FAERS Safety Report 7224106-7 (Version None)
Quarter: 2011Q1

REPORT INFORMATION
  Report Type: 
  Country: None (occurrence: None)
  Receive Date: 20110113
  Receipt Date: 20110110
  Transmission Date: 20110831
  Serious: Yes (Other)
  Sender: FDA-Public Use
  Company Number: BR-AMGEN-BRASP2011000632

PATIENT

DRUGS (3)
  1. ARCOXIA [Concomitant]
     Dosage: 90 MG, UNK
  2. ARCOXIA [Concomitant]
     Indication: PAIN
     Dosage: 90 MG, PRN
  3. ENBREL [Suspect]
     Indication: RHEUMATOID ARTHRITIS
     Dosage: 50 MG, WEEKLY
     Route: 058
     Dates: start: 20101119

REACTIONS (7)
  - LISTLESS [None]
  - PAIN IN EXTREMITY [None]
  - OEDEMA PERIPHERAL [None]
  - JOINT SWELLING [None]
  - PAIN [None]
  - FATIGUE [None]
  - ARTHRALGIA [None]
